FAERS Safety Report 14701455 (Version 1)
Quarter: 2018Q1

REPORT INFORMATION
  Report Type: Report from Study
  Country: US (occurrence: US)
  Receive Date: 20180330
  Receipt Date: 20180330
  Transmission Date: 20180509
  Serious: Yes (Hospitalization, Other)
  Sender: FDA-Public Use
  Company Number: US-GILEAD-2018-0329423

PATIENT
  Age: 70 Year
  Sex: Female

DRUGS (1)
  1. RANOLAZINE. [Suspect]
     Active Substance: RANOLAZINE
     Indication: ANGINA PECTORIS
     Dosage: 1000 MG, QD
     Route: 048
     Dates: start: 2012

REACTIONS (3)
  - Stent placement [Recovered/Resolved]
  - Coronary artery occlusion [Unknown]
  - Peripheral artery occlusion [Unknown]

NARRATIVE: CASE EVENT DATE: 2013
